FAERS Safety Report 18963237 (Version 1)
Quarter: 2021Q1

REPORT INFORMATION
  Report Type: Spontaneous
  Country: US (occurrence: US)
  Receive Date: 20210303
  Receipt Date: 20210303
  Transmission Date: 20210420
  Serious: No
  Sender: FDA-Public Use
  Company Number: None

PATIENT
  Age: 41 Year
  Sex: Female

DRUGS (16)
  1. DEXAMETHASONE 10 MG/ML VIAL [Concomitant]
  2. ZARXIO 300 MCG/0.5 ML SYRN [Concomitant]
  3. ETOPOSIDE. [Suspect]
     Active Substance: ETOPOSIDE
     Dosage: ?          OTHER FREQUENCY:ON DAYS 1 AND 2;?
     Route: 042
  4. LEUCOVORIN. [Suspect]
     Active Substance: LEUCOVORIN
     Route: 048
  5. FAMOTIDINE 20 MG/2 ML VIAL [Concomitant]
  6. FOSAPREPITANT 150 MG VIAL [Concomitant]
  7. IBUPROFEN. [Concomitant]
     Active Substance: IBUPROFEN
  8. MULTIVITAMIN, PRENATAL [Concomitant]
  9. DOXYCYCLINE MONOHYDRATE [Concomitant]
     Active Substance: DOXYCYCLINE
  10. METHOTREXATE SODIUM. [Concomitant]
     Active Substance: METHOTREXATE SODIUM
  11. DIPHENHYDRAMINE 50 MG/ML VIAL [Concomitant]
  12. ORTHO TRI CYCLEN LO [Concomitant]
     Active Substance: ETHINYL ESTRADIOL\NORGESTIMATE
  13. METHERGINE [Concomitant]
     Active Substance: METHYLERGONOVINE MALEATE
  14. PALONOSETRON 0.25 MG ? TWO ML [Concomitant]
  15. DACTINOMYCIN 0.5 MG VIAL [Concomitant]
  16. METHOTREXATE SDV 1 GM/40 ML VI [Concomitant]

REACTIONS (1)
  - Disease progression [None]

NARRATIVE: CASE EVENT DATE: 20210303
